FAERS Safety Report 5038158-6 (Version None)
Quarter: 2006Q2

REPORT INFORMATION
  Report Type: 
  Country: None (occurrence: None)
  Receive Date: 20060622
  Receipt Date: 20060612
  Transmission Date: 20061013
  Serious: Yes (Other)
  Sender: FDA-Public Use
  Company Number: 2006076434

PATIENT
  Age: 79 Year
  Sex: Female
  Weight: 68.0396 kg

DRUGS (4)
  1. LIPITOR [Suspect]
     Indication: CARDIAC DISORDER
  2. NORVASC [Suspect]
     Indication: CARDIAC DISORDER
  3. TOPROL-XL [Concomitant]
  4. NITRO PATCH (GLYCERYL TRINITRATE) [Concomitant]

REACTIONS (4)
  - ARTERIAL DISORDER [None]
  - PAIN IN EXTREMITY [None]
  - STENT PLACEMENT [None]
  - THERAPY NON-RESPONDER [None]
